FAERS Safety Report 7121360-7 (Version None)
Quarter: 2010Q4

REPORT INFORMATION
  Report Type: 
  Country: None (occurrence: None)
  Receive Date: 20101124
  Receipt Date: 20101111
  Transmission Date: 20110411
  Serious: Yes (Hospitalization, Other)
  Sender: FDA-Public Use
  Company Number: PHEH2008US03781

PATIENT
  Sex: Female

DRUGS (63)
  1. AREDIA [Suspect]
  2. ZOMETA [Suspect]
  3. CHEMOTHERAPEUTICS,OTHER [Concomitant]
  4. RADIATION THERAPY [Concomitant]
  5. CHLORHEXIDINE [Concomitant]
  6. COUMADIN [Concomitant]
  7. KLOR-CON [Concomitant]
  8. MAGNESIUM OXIDE [Concomitant]
  9. MELATONIN [Concomitant]
  10. NEXIUM [Concomitant]
  11. OXYCODONE HCL [Concomitant]
  12. OXYCONTIN [Concomitant]
  13. PAXIL [Concomitant]
  14. PENICILLIN ^GRUNENTHAL^ [Concomitant]
  15. SENNA [Concomitant]
  16. YEAST [Concomitant]
  17. CEPHALEXIN [Concomitant]
  18. PRILOSEC [Concomitant]
  19. REGLAN [Concomitant]
     Dosage: 10 MG P.O, QID
  20. MACROBID [Concomitant]
     Dosage: 100 MG P.O. QHS
  21. ZANTAC [Concomitant]
  22. LORAZEPAM [Concomitant]
     Dosage: 2 MG P.O QHS
     Route: 048
  23. MECLOMEN [Concomitant]
  24. METHADONE [Concomitant]
     Dosage: 10 MG, QHS AND PRN
  25. ORTHO-CEPT [Concomitant]
     Dosage: P.O DAILY
     Route: 048
  26. PHAZYME [Concomitant]
     Dosage: P.O DAILY
     Route: 048
  27. PROZAC [Concomitant]
  28. OXYCODONE HCL [Concomitant]
     Dosage: 5 MG Q. 4H
  29. CIPROFLOXACIN [Concomitant]
  30. PREDNISONE [Concomitant]
     Indication: DYSPNOEA
  31. AVELOX [Concomitant]
     Indication: PNEUMONIA
  32. LASIX [Concomitant]
     Indication: OEDEMA
  33. THALIDOMIDE [Concomitant]
     Indication: RENAL CELL CARCINOMA
  34. ARGATROBAN [Concomitant]
     Indication: DEEP VEIN THROMBOSIS
  35. XELODA [Concomitant]
     Indication: RENAL CELL CARCINOMA
  36. GEMCITABINE [Concomitant]
     Indication: RENAL CELL CARCINOMA
  37. CYTOXAN [Concomitant]
     Indication: RENAL CELL CARCINOMA
  38. QUINOLONE ANTIBACTERIALS [Concomitant]
     Indication: RESPIRATORY TRACT INFECTION
  39. DOXYCYCLINE [Concomitant]
     Indication: RESPIRATORY TRACT INFECTION
  40. TEQUIN [Concomitant]
     Indication: PYREXIA
  41. DIFLUCAN [Concomitant]
     Indication: PYREXIA
  42. LOVENOX [Concomitant]
     Indication: PROPHYLAXIS
  43. CYMBALTA [Concomitant]
     Dosage: 60 MG, QD
  44. RISPERDAL [Concomitant]
  45. SEROQUEL [Concomitant]
     Dosage: UNK
     Dates: end: 20090729
  46. CELEXA [Concomitant]
     Indication: PSYCHOTIC DISORDER
     Dosage: 60 MG, QD
  47. OXYGEN [Concomitant]
     Indication: HYPOXIA
  48. NEURONTIN [Concomitant]
     Dosage: 300 MG, TID
  49. DEPO-PROVERA [Concomitant]
  50. ORAL CONTRACEPTIVE NOS [Concomitant]
  51. DILAUDID [Concomitant]
  52. LEXAPRO [Concomitant]
  53. MARCAINE [Concomitant]
  54. VICODIN [Concomitant]
  55. XANAX [Concomitant]
  56. BACTRIM [Concomitant]
     Route: 048
  57. VIOXX [Concomitant]
     Dosage: 25 MG, QD
     Route: 048
  58. AMBIEN [Concomitant]
     Dosage: UNK
     Route: 048
  59. COMPAZINE [Concomitant]
     Dosage: 10 MG, PRN
  60. BIAXIN [Concomitant]
     Dosage: 250 MG, BID
     Route: 048
  61. RITALIN [Concomitant]
     Dosage: 80 MG, BID
  62. TETRACYCLINE [Concomitant]
  63. BLOOD AND RELATED PRODUCTS [Concomitant]

REACTIONS (57)
  - ACTINOMYCES TEST POSITIVE [None]
  - ACUTE PSYCHOSIS [None]
  - AMNESIA [None]
  - ASTHENIA [None]
  - BONE DISORDER [None]
  - BONE GRAFT [None]
  - BONE LESION [None]
  - BREATH ODOUR [None]
  - BRONCHITIS [None]
  - CANDIDIASIS [None]
  - CELLULITIS [None]
  - CERVICAL DYSPLASIA [None]
  - CHRONIC SINUSITIS [None]
  - CONSTIPATION [None]
  - DEBRIDEMENT [None]
  - DEEP VEIN THROMBOSIS [None]
  - DEFORMITY [None]
  - DELIRIUM [None]
  - DISCOMFORT [None]
  - DIZZINESS [None]
  - DYSPNOEA [None]
  - GASTRIC BYPASS [None]
  - HALLUCINATION, AUDITORY [None]
  - HEADACHE [None]
  - HYPOKALAEMIA [None]
  - HYPOXIA [None]
  - INFECTION [None]
  - INSOMNIA [None]
  - INTERSTITIAL LUNG DISEASE [None]
  - KERATITIS [None]
  - LUNG INFILTRATION [None]
  - MALIGNANT NEOPLASM PROGRESSION [None]
  - METASTASES TO BONE [None]
  - MUSCULOSKELETAL PAIN [None]
  - OEDEMA PERIPHERAL [None]
  - OSTEOMYELITIS [None]
  - OSTEONECROSIS OF JAW [None]
  - PAIN [None]
  - PAIN IN EXTREMITY [None]
  - PANCYTOPENIA [None]
  - PARAESTHESIA [None]
  - PARANOIA [None]
  - PNEUMONIA [None]
  - PYELOCALIECTASIS [None]
  - RESPIRATORY FAILURE [None]
  - SEBORRHOEIC KERATOSIS [None]
  - SEQUESTRECTOMY [None]
  - SMALL INTESTINAL OBSTRUCTION [None]
  - SPEECH DISORDER [None]
  - SPINAL CORD DISORDER [None]
  - STOMATITIS [None]
  - THORACOTOMY [None]
  - THROMBOCYTOPENIA [None]
  - TOOTH EXTRACTION [None]
  - URINARY TRACT INFECTION [None]
  - VOMITING [None]
  - WEIGHT DECREASED [None]
